FAERS Safety Report 7941180-0 (Version None)
Quarter: 2011Q4

REPORT INFORMATION
  Report Type: 
  Country: None (occurrence: None)
  Receive Date: 20111128
  Receipt Date: 20111116
  Transmission Date: 20120403
  Serious: No
  Sender: FDA-Public Use
  Company Number: US-JNJFOC-20111108288

PATIENT
  Sex: Female

DRUGS (6)
  1. INVEGA SUSTENNA [Suspect]
     Route: 030
     Dates: start: 20110101, end: 20110101
  2. NICOTINE [Concomitant]
     Route: 062
  3. SODIUM FLUORIDE [Concomitant]
     Route: 065
  4. PERPHENAZINE [Concomitant]
     Route: 065
  5. INVEGA SUSTENNA [Suspect]
     Indication: SCHIZOPHRENIA
     Route: 030
     Dates: start: 20110101, end: 20110101
  6. NUVARING [Concomitant]

REACTIONS (1)
  - THERAPEUTIC RESPONSE DECREASED [None]
